FAERS Safety Report 19032152 (Version 1)
Quarter: 2021Q1

REPORT INFORMATION
  Report Type: Spontaneous
  Country: US (occurrence: US)
  Receive Date: 20210319
  Receipt Date: 20210319
  Transmission Date: 20210420
  Serious: No
  Sender: FDA-Public Use
  Company Number: US-NANJING KING-FRIEND BIOCHEMICAL PHARMACEUTICAL CO. LTD.-2020NKF00072

PATIENT
  Age: 51 Year
  Sex: Male
  Weight: 77.1 kg

DRUGS (4)
  1. ENOXAPARIN SODIUM. [Suspect]
     Active Substance: ENOXAPARIN SODIUM
     Dosage: 100 MG, 2X/DAY
     Route: 058
     Dates: start: 202011
  2. ENOXAPARIN SODIUM. [Suspect]
     Active Substance: ENOXAPARIN SODIUM
     Indication: ANTITHROMBIN III DEFICIENCY
     Dosage: UNK
     Route: 058
  3. PENTOXIFYLLINE. [Concomitant]
     Active Substance: PENTOXIFYLLINE
     Dosage: 400 MG, 3X/DAY
     Route: 048
  4. BABY ASPIRIN [Concomitant]
     Active Substance: ASPIRIN
     Dosage: 162 MG, 1X/DAY
     Route: 048

REACTIONS (3)
  - Injection site haemorrhage [Unknown]
  - Off label use [Not Recovered/Not Resolved]
  - Product administration error [Unknown]
